FAERS Safety Report 4385647-3 (Version None)
Quarter: 2004Q2

REPORT INFORMATION
  Report Type: 
  Country: None (occurrence: None)
  Receive Date: 20040623
  Receipt Date: 20040608
  Transmission Date: 20050107
  Serious: Yes (Hospitalization)
  Sender: FDA-Public Use
  Company Number: GBT040601426

PATIENT
  Age: 33 Year
  Sex: Female
  Weight: 109 kg

DRUGS (2)
  1. GEMCITABINE HYDROCHLORIDE-IV (GEMCITABINE) [Suspect]
     Indication: BREAST CANCER
     Dosage: 2750 MG
  2. PACLITAXEL [Suspect]
     Indication: BREAST CANCER
     Dosage: 2750 MG

REACTIONS (1)
  - CAT SCRATCH DISEASE [None]
